FAERS Safety Report 14478521 (Version 1)
Quarter: 2018Q1

REPORT INFORMATION
  Report Type: Spontaneous
  Country: IN (occurrence: IN)
  Receive Date: 20180202
  Receipt Date: 20180202
  Transmission Date: 20180509
  Serious: Yes (Other)
  Sender: FDA-Public Use
  Company Number: IN-ACCORD-062748

PATIENT
  Age: 60 Year
  Sex: Male

DRUGS (7)
  1. TRAMADOL/TRAMADOL HYDROCHLORIDE [Suspect]
     Active Substance: TRAMADOL HYDROCHLORIDE
     Indication: ANALGESIC THERAPY
  2. INSULIN BOVINE [Concomitant]
     Dosage: 6 IU SUBCUTANEOUSLY (RBS 291 G/DL).
     Route: 058
  3. PANTOPRAZOLE [Concomitant]
     Active Substance: PANTOPRAZOLE
     Dosage: 40 MG INTRAVENOUS INJECTION 24-HOURLY
     Route: 042
  4. FUROSEMIDE. [Concomitant]
     Active Substance: FUROSEMIDE
     Dosage: IN NORMAL SALINE 12-HOURLY
     Route: 042
  5. CIPROFLOXACIN. [Concomitant]
     Active Substance: CIPROFLOXACIN
     Dosage: 400 MG INTRAVENOUSLY 12-HOURLY
     Route: 042
  6. LACTULOSE. [Concomitant]
     Active Substance: LACTULOSE
     Dosage: 20 ML 8-HOURLY
  7. CEFOPERAZONE/SULBACTAM [Concomitant]
     Dosage: 1.5 G INTRAVENOUSLY 12 HOURLY
     Route: 042

REACTIONS (2)
  - Abdominal distension [Unknown]
  - Hiccups [Recovered/Resolved]
